FAERS Safety Report 10005841 (Version 1)
Quarter: 2014Q1

REPORT INFORMATION
  Report Type: Spontaneous
  Country: US (occurrence: BR)
  Receive Date: 20140313
  Receipt Date: 20140313
  Transmission Date: 20141002
  Serious: Yes (Death, Hospitalization, Other)
  Sender: FDA-Public Use
  Company Number: 2014SP001262

PATIENT
  Age: 82 Year
  Sex: 0

DRUGS (4)
  1. METHOTREXATE [Suspect]
     Indication: PRODUCT USED FOR UNKNOWN INDICATION
  2. PREDNISOLONE [Suspect]
     Indication: PRODUCT USED FOR UNKNOWN INDICATION
  3. ETANERCEPT [Suspect]
     Indication: RHEUMATOID ARTHRITIS
     Route: 058
     Dates: start: 201307, end: 201402
  4. LEFLUNOMIDE [Suspect]
     Indication: PRODUCT USED FOR UNKNOWN INDICATION

REACTIONS (2)
  - Death [Fatal]
  - Myelodysplastic syndrome [Unknown]
